FAERS Safety Report 6198663-6 (Version None)
Quarter: 2009Q2

REPORT INFORMATION
  Report Type: 
  Country: None (occurrence: None)
  Receive Date: 20090521
  Receipt Date: 20090507
  Transmission Date: 20091009
  Serious: Yes (Other)
  Sender: FDA-Public Use
  Company Number: CA-GENENTECH-283002

PATIENT
  Age: 15 Year
  Sex: Female

DRUGS (4)
  1. RITUXAN [Suspect]
     Indication: SYSTEMIC LUPUS ERYTHEMATOSUS
     Route: 065
  2. ACETAMINOPHEN [Suspect]
     Indication: PREMEDICATION
     Route: 065
  3. DIPHENHYDRAMINE HCL [Suspect]
     Indication: PREMEDICATION
     Route: 065
  4. HYDROCORTISONE [Suspect]
     Indication: PREMEDICATION

REACTIONS (2)
  - INFUSION RELATED REACTION [None]
  - SYSTEMIC LUPUS ERYTHEMATOSUS [None]
